FAERS Safety Report 20431361 (Version 1)
Quarter: 2022Q1

REPORT INFORMATION
  Report Type: Spontaneous
  Country: US (occurrence: US)
  Receive Date: 20220204
  Receipt Date: 20220204
  Transmission Date: 20220423
  Serious: Yes (Other)
  Sender: FDA-Public Use
  Company Number: US-ALLERGAN-2204046US

PATIENT
  Sex: Female

DRUGS (1)
  1. BOTOX [Suspect]
     Active Substance: ONABOTULINUMTOXINA
     Indication: Product used for unknown indication
     Dosage: UNK UNK, SINGLE
     Dates: start: 20210127, end: 20210127

REACTIONS (11)
  - Suicidal ideation [Unknown]
  - Ophthalmoplegia [Not Recovered/Not Resolved]
  - Migraine [Unknown]
  - Anxiety [Unknown]
  - Psychological trauma [Unknown]
  - Muscle injury [Unknown]
  - Eye disorder [Unknown]
  - Emotional distress [Unknown]
  - Eye pain [Unknown]
  - Eyelid ptosis [Unknown]
  - Diplopia [Unknown]
